FAERS Safety Report 7252407-5 (Version None)
Quarter: 2011Q1

REPORT INFORMATION
  Report Type: 
  Country: None (occurrence: None)
  Receive Date: 20110129
  Receipt Date: 20100119
  Transmission Date: 20110831
  Serious: No
  Sender: FDA-Public Use
  Company Number: US-ABBOTT-10P-163-0620366-00

PATIENT
  Sex: Female
  Weight: 76.272 kg

DRUGS (2)
  1. 14 UNKNOWN MEDICATIONS [Concomitant]
     Dosage: ROUTINELY
  2. HUMIRA [Suspect]
     Indication: RHEUMATOID ARTHRITIS
     Dates: start: 20090707

REACTIONS (3)
  - OROPHARYNGEAL PAIN [None]
  - PYREXIA [None]
  - PAIN [None]
